FAERS Safety Report 8876703 (Version 1)
Quarter: 2012Q4

REPORT INFORMATION
  Report Type: 
  Country: US (occurrence: US)
  Receive Date: 20121023
  Receipt Date: 20121023
  Transmission Date: 20130627
  Serious: Yes (Hospitalization)
  Sender: FDA-Public Use
  Company Number: US-AMGEN-USASP2012009403

PATIENT
  Sex: Female

DRUGS (11)
  1. ENBREL [Suspect]
     Indication: PRODUCT USED FOR UNKNOWN INDICATION
     Dosage: 25 mg, 2 times/wk
     Route: 058
  2. XANAX [Concomitant]
     Dosage: 1 mg, UNK
  3. OXYCOD                             /00045603/ [Concomitant]
     Dosage: 500 mg, UNK
  4. FLUCONAZOLE [Concomitant]
     Dosage: 50 mg, UNK
  5. CLONAZEPAM [Concomitant]
     Dosage: 2 mg, UNK
  6. METFORMIN [Concomitant]
     Dosage: 850 mg, UNK
  7. QUININE SULF [Concomitant]
     Dosage: 200 mg, UNK
  8. POTASSIUM [Concomitant]
     Dosage: 75 mg, UNK
  9. BENICAR [Concomitant]
     Dosage: 20 mg, UNK
  10. ACIPHEX [Concomitant]
     Dosage: 20 mg, UNK
  11. MAGNESIUM [Concomitant]
     Dosage: 300 mg, UNK

REACTIONS (2)
  - Kidney infection [Unknown]
  - Vulvovaginal mycotic infection [Unknown]
